FAERS Safety Report 12172034 (Version 2)
Quarter: 2016Q1

REPORT INFORMATION
  Report Type: Spontaneous
  Country: US (occurrence: US)
  Receive Date: 20160311
  Receipt Date: 20160321
  Transmission Date: 20160526
  Serious: Yes (Other)
  Sender: FDA-Public Use
  Company Number: US-TEVA-641387USA

PATIENT
  Sex: Male

DRUGS (1)
  1. OCTREOTIDE. [Suspect]
     Active Substance: OCTREOTIDE
     Indication: NEUROENDOCRINE TUMOUR
     Dosage: 20 OR 30MG INJECTION
     Route: 065
     Dates: start: 201101

REACTIONS (2)
  - Neuroendocrine carcinoma metastatic [Unknown]
  - Drug effect decreased [Unknown]
